FAERS Safety Report 5062832-9 (Version None)
Quarter: 2006Q3

REPORT INFORMATION
  Report Type: 
  Country: None (occurrence: None)
  Receive Date: 20060724
  Receipt Date: 20060711
  Transmission Date: 20061208
  Serious: Yes (Hospitalization)
  Sender: FDA-Public Use
  Company Number: 2006081337

PATIENT
  Age: 56 Year
  Sex: Female
  Weight: 66 kg

DRUGS (3)
  1. SUTENT [Suspect]
     Indication: METASTATIC RENAL CELL CARCINOMA
     Dosage: 50 MG (50 MG, QD - INTERVAL: EVERY DAY), ORAL
     Route: 048
     Dates: start: 20051207
  2. ENALAPRIL MALEATE [Concomitant]
  3. BISOPROLOL FUMARATE [Concomitant]

REACTIONS (10)
  - ANXIETY [None]
  - ASTHENIA [None]
  - CARDIAC FAILURE [None]
  - CONGESTIVE CARDIOMYOPATHY [None]
  - ECG SIGNS OF MYOCARDIAL ISCHAEMIA [None]
  - FALL [None]
  - HEPATIC ENZYME INCREASED [None]
  - LUNG INFILTRATION [None]
  - PLEURAL EFFUSION [None]
  - VOMITING [None]
